FAERS Safety Report 22386996 (Version 1)
Quarter: 2023Q2

REPORT INFORMATION
  Report Type: Report from Study
  Country: AR (occurrence: AR)
  Receive Date: 20230531
  Receipt Date: 20230531
  Transmission Date: 20230722
  Serious: Yes (Hospitalization, Other)
  Sender: FDA-Public Use
  Company Number: AR-ABBVIE-5185454

PATIENT
  Age: 51 Year
  Sex: Female

DRUGS (1)
  1. RINVOQ [Suspect]
     Active Substance: UPADACITINIB
     Indication: Rheumatoid arthritis
     Dosage: FORM STRENGTH: 30 MILLIGRAM
     Route: 048
     Dates: start: 20210202

REACTIONS (4)
  - Pneumonia [Recovered/Resolved]
  - Skin ulcer [Recovering/Resolving]
  - Type 1 diabetes mellitus [Unknown]
  - Fluid retention [Unknown]

NARRATIVE: CASE EVENT DATE: 20211101
